FAERS Safety Report 12902014 (Version 4)
Quarter: 2016Q4

REPORT INFORMATION
  Report Type: Report from Study
  Country: CN (occurrence: CN)
  Receive Date: 20161102
  Receipt Date: 20161214
  Transmission Date: 20170207
  Serious: Yes (Hospitalization)
  Sender: FDA-Public Use
  Company Number: PHHO2016CN012080

PATIENT
  Age: 52 Year
  Sex: Female
  Weight: 54 kg

DRUGS (56)
  1. ALIMTA [Suspect]
     Active Substance: PEMETREXED DISODIUM
     Dosage: 780 MG, QD
     Route: 042
     Dates: start: 20150605, end: 20150605
  2. INSULIN [Concomitant]
     Active Substance: INSULIN NOS
     Dosage: 50 IU, QD
     Route: 042
     Dates: start: 20160817, end: 20160817
  3. SODIUM CHLORIDE. [Concomitant]
     Active Substance: SODIUM CHLORIDE
     Dosage: 30 MG, QD
     Route: 055
     Dates: start: 20160826, end: 20160826
  4. DIPROPHYLLINE [Concomitant]
     Active Substance: DYPHYLLINE
     Indication: PRODUCTIVE COUGH
     Dosage: 0.25 G, QD
     Route: 042
     Dates: start: 20160819, end: 20160827
  5. ALIMTA [Suspect]
     Active Substance: PEMETREXED DISODIUM
     Dosage: 770 MG, QD
     Route: 042
     Dates: start: 20150311, end: 20150403
  6. SODIUM CHLORIDE. [Concomitant]
     Active Substance: SODIUM CHLORIDE
     Indication: COUGH
     Dosage: 60 MG, QD
     Route: 042
     Dates: start: 20160813
  7. SPIRONOLACTONE. [Concomitant]
     Active Substance: SPIRONOLACTONE
     Indication: DIURETIC THERAPY
     Dosage: 20 MG, QD
     Route: 048
     Dates: start: 20160819, end: 20160819
  8. CHYMOTRYPSIN [Concomitant]
     Active Substance: CHYMOTRYPSIN
     Indication: PRODUCTIVE COUGH
     Dosage: 4000 IU, QD (AEROSO)
     Route: 055
     Dates: start: 20160822, end: 20160826
  9. LDK378 [Suspect]
     Active Substance: CERITINIB
     Indication: NON-SMALL CELL LUNG CANCER
     Dosage: 750 MG, QD
     Route: 048
     Dates: start: 20160630, end: 20160720
  10. ALIMTA [Suspect]
     Active Substance: PEMETREXED DISODIUM
     Indication: NON-SMALL CELL LUNG CANCER
     Dosage: 780 MG, QD
     Route: 042
     Dates: start: 20141216, end: 20150217
  11. AMBROXOL HYDROCHLORIDE [Concomitant]
     Active Substance: AMBROXOL HYDROCHLORIDE
     Indication: COUGH
     Dosage: 60 MG, QD
     Route: 042
     Dates: start: 20160813
  12. AMBROXOL HYDROCHLORIDE [Concomitant]
     Active Substance: AMBROXOL HYDROCHLORIDE
     Dosage: 30 MG, QD
     Route: 042
     Dates: start: 20160830, end: 20160914
  13. THYMOPENTIN [Concomitant]
     Active Substance: THYMOPENTIN
     Indication: PRODUCT USED FOR UNKNOWN INDICATION
     Dosage: 10 MG, QD
     Route: 042
     Dates: start: 20160826, end: 20160827
  14. CEFOPERAZONE SODIUM AND TAZOBACTAM SODIUM [Concomitant]
     Active Substance: CEFOPERAZONE\TAZOBACTAM SODIUM
     Indication: ANTI-INFECTIVE THERAPY
     Dosage: 3 G, BID
     Route: 042
     Dates: start: 20160813, end: 20160821
  15. POTASSIUM CHLORIDE. [Concomitant]
     Active Substance: POTASSIUM CHLORIDE
     Dosage: 15 ML, QD
     Route: 042
     Dates: start: 20160824, end: 20160824
  16. ALIMTA [Suspect]
     Active Substance: PEMETREXED DISODIUM
     Dosage: 760 MG, QD
     Route: 042
     Dates: start: 20160506
  17. OMEPRAZOLE. [Concomitant]
     Active Substance: OMEPRAZOLE
     Dosage: 40 MG, QD
     Route: 042
     Dates: start: 20160911, end: 20160917
  18. INSULIN [Concomitant]
     Active Substance: INSULIN NOS
     Indication: DIABETES MELLITUS
     Dosage: 8 IU, PRN
     Route: 055
     Dates: start: 20160813, end: 20160813
  19. CLINDAMYCIN PHOSPHATE. [Concomitant]
     Active Substance: CLINDAMYCIN PHOSPHATE
     Indication: ANTI-INFECTIVE THERAPY
     Dosage: 0.6 G, BID
     Route: 042
     Dates: start: 20160830, end: 20160906
  20. CEFTRIAXONE SODIUM. [Concomitant]
     Active Substance: CEFTRIAXONE SODIUM
     Indication: ANTI-INFECTIVE THERAPY
     Dosage: 30 MG, QD
     Route: 042
     Dates: start: 20160830, end: 20160914
  21. POTASSIUM CHLORIDE. [Concomitant]
     Active Substance: POTASSIUM CHLORIDE
     Dosage: 1 G, TID
     Route: 048
     Dates: start: 20161018, end: 20161018
  22. COENZYME A [Concomitant]
     Active Substance: COENZYME A
     Indication: CARDIOVASCULAR EVENT PROPHYLAXIS
     Dosage: 100 IU, QD
     Route: 042
     Dates: start: 20160816, end: 20160817
  23. LDK378 [Suspect]
     Active Substance: CERITINIB
     Dosage: 750 MG, QD
     Route: 048
     Dates: start: 20160725, end: 20160815
  24. LDK378 [Suspect]
     Active Substance: CERITINIB
     Dosage: 600 MG, QD
     Route: 048
     Dates: start: 20160905, end: 20161022
  25. ALIMTA [Suspect]
     Active Substance: PEMETREXED DISODIUM
     Dosage: 780 MG, QD
     Route: 042
     Dates: start: 20150424, end: 20150424
  26. ALIMTA [Suspect]
     Active Substance: PEMETREXED DISODIUM
     Dosage: 770 MG, QD
     Route: 042
     Dates: start: 20150515, end: 20150515
  27. INSULIN [Concomitant]
     Active Substance: INSULIN NOS
     Dosage: 6 IU, QD
     Route: 055
     Dates: start: 20160814, end: 20160814
  28. INSULIN [Concomitant]
     Active Substance: INSULIN NOS
     Dosage: 10 IU, QD (PRN)
     Route: 055
     Dates: start: 20160815, end: 20160815
  29. INSULIN [Concomitant]
     Active Substance: INSULIN NOS
     Dosage: 60 IU, QD
     Route: 042
     Dates: start: 20160822, end: 20160823
  30. SODIUM CHLORIDE. [Concomitant]
     Active Substance: SODIUM CHLORIDE
     Indication: ASTHMA
     Dosage: 30 MG, QD
     Route: 055
     Dates: start: 20160822, end: 20160824
  31. POTASSIUM CHLORIDE. [Concomitant]
     Active Substance: POTASSIUM CHLORIDE
     Dosage: 15 ML, QD
     Route: 042
     Dates: start: 20160814, end: 20160814
  32. FUROSEMIDE. [Concomitant]
     Active Substance: FUROSEMIDE
     Dosage: 40 MG, QD
     Route: 042
     Dates: start: 20160822, end: 20160827
  33. DEXAMETHASONE SODIUM PHOSPHATE. [Concomitant]
     Active Substance: DEXAMETHASONE SODIUM PHOSPHATE
     Indication: PRODUCTIVE COUGH
     Dosage: 5 MG, QD
     Route: 042
     Dates: start: 20160819, end: 20160822
  34. CISPLATIN. [Suspect]
     Active Substance: CISPLATIN
     Indication: NON-SMALL CELL LUNG CANCER
     Dosage: 115 MG, QD
     Route: 042
     Dates: start: 20141216
  35. ALIMTA [Suspect]
     Active Substance: PEMETREXED DISODIUM
     Dosage: 775 MG, QD
     Route: 042
     Dates: start: 20150626, end: 20150807
  36. ALIMTA [Suspect]
     Active Substance: PEMETREXED DISODIUM
     Dosage: 770 MG, QD
     Route: 042
     Dates: start: 20150828, end: 20150828
  37. ALIMTA [Suspect]
     Active Substance: PEMETREXED DISODIUM
     Dosage: 770 MG, QD
     Route: 042
     Dates: start: 20151009, end: 20151009
  38. DOXOFYLLINE [Concomitant]
     Active Substance: DOXOFYLLINE
     Indication: DYSPNOEA
     Dosage: 0.2 G, QD
     Route: 042
     Dates: start: 20160830, end: 20160910
  39. POTASSIUM CHLORIDE. [Concomitant]
     Active Substance: POTASSIUM CHLORIDE
     Dosage: 15 ML, BID
     Route: 042
     Dates: start: 20160816, end: 20160818
  40. FUROSEMIDE. [Concomitant]
     Active Substance: FUROSEMIDE
     Indication: DIURETIC THERAPY
     Dosage: 20 MG, QD
     Route: 042
     Dates: start: 20160814, end: 20160817
  41. DEXTROMETHORPHAN HYDROBROMIDE. [Concomitant]
     Active Substance: DEXTROMETHORPHAN HYDROBROMIDE
     Indication: PRODUCTIVE COUGH
     Dosage: 15 MG, TID
     Route: 048
     Dates: start: 20160815, end: 20160815
  42. ALIMTA [Suspect]
     Active Substance: PEMETREXED DISODIUM
     Dosage: 770 MG, QD
     Route: 042
     Dates: start: 20160415, end: 20160415
  43. AMBROXOL HYDROCHLORIDE [Concomitant]
     Active Substance: AMBROXOL HYDROCHLORIDE
     Indication: ASTHMA
     Dosage: 30 MG, QD
     Route: 055
     Dates: start: 20160822, end: 20160824
  44. OMEPRAZOLE. [Concomitant]
     Active Substance: OMEPRAZOLE
     Indication: PROPHYLAXIS
     Dosage: 40 MG, BID
     Route: 042
     Dates: start: 20160830, end: 20160907
  45. INSULIN [Concomitant]
     Active Substance: INSULIN NOS
     Dosage: 60 IU, QD
     Route: 042
     Dates: start: 20160818, end: 20160818
  46. INSULIN [Concomitant]
     Active Substance: INSULIN NOS
     Dosage: 50 IU, QD
     Route: 042
     Dates: start: 20160819, end: 20160819
  47. INSULIN [Concomitant]
     Active Substance: INSULIN NOS
     Dosage: 60 IU, QD
     Route: 042
     Dates: start: 20160820, end: 20160820
  48. INSULIN [Concomitant]
     Active Substance: INSULIN NOS
     Dosage: 50 IU, QD
     Route: 042
     Dates: start: 20160821, end: 20160821
  49. POTASSIUM CHLORIDE. [Concomitant]
     Active Substance: POTASSIUM CHLORIDE
     Indication: MINERAL SUPPLEMENTATION
     Dosage: 15 ML, BID
     Route: 042
     Dates: start: 20160813, end: 20160813
  50. ANALGIN [Concomitant]
     Active Substance: METAMIZOLE SODIUM
     Indication: PRODUCT USED FOR UNKNOWN INDICATION
     Dosage: 0.5 G, QD
     Route: 030
     Dates: start: 20160813, end: 20160816
  51. ONDANSETRON [Concomitant]
     Active Substance: ONDANSETRON
     Indication: ANTIEMETIC SUPPORTIVE CARE
     Dosage: 4 MG, QD
     Route: 042
     Dates: start: 20160816, end: 20160817
  52. ALIMTA [Suspect]
     Active Substance: PEMETREXED DISODIUM
     Dosage: 780 MG, QD
     Route: 042
     Dates: start: 20151030, end: 20160325
  53. AMBROXOL HYDROCHLORIDE [Concomitant]
     Active Substance: AMBROXOL HYDROCHLORIDE
     Dosage: 30 MG, QD
     Route: 055
     Dates: start: 20160826, end: 20160826
  54. VITAMIN C [Concomitant]
     Active Substance: ASCORBIC ACID
     Indication: NUTRITIONAL SUPPLEMENTATION
     Dosage: 3 G, QD
     Route: 042
     Dates: start: 20160813, end: 20160816
  55. MOSAPRIDE CITRATE [Concomitant]
     Active Substance: MOSAPRIDE CITRATE
     Indication: PRODUCT USED FOR UNKNOWN INDICATION
     Dosage: 5 MG, TID
     Route: 048
     Dates: start: 20160917, end: 20160917
  56. DICLOFENAC SODIUM. [Concomitant]
     Active Substance: DICLOFENAC SODIUM
     Indication: ANALGESIC THERAPY
     Dosage: 0.1 G, BID
     Route: 048
     Dates: start: 20160828, end: 20160828

REACTIONS (2)
  - Lung infection [Recovered/Resolved]
  - Hyperglycaemia [Recovered/Resolved]

NARRATIVE: CASE EVENT DATE: 20160811
